FAERS Safety Report 9890726 (Version 3)
Quarter: 2014Q1

REPORT INFORMATION
  Report Type: Spontaneous
  Country: US (occurrence: US)
  Receive Date: 20140212
  Receipt Date: 20140324
  Transmission Date: 20141002
  Serious: No
  Sender: FDA-Public Use
  Company Number: US-009507513-1402USA005381

PATIENT
  Age: 84 Year
  Sex: Female

DRUGS (1)
  1. PROVENTIL [Suspect]
     Dosage: 1-2 PUFFS, Q 4-6?,  AS NEEDED
     Route: 055
     Dates: start: 20140206

REACTIONS (5)
  - Frustration [Unknown]
  - Anxiety [Unknown]
  - Drug dose omission [Unknown]
  - Underdose [Unknown]
  - Product quality issue [Unknown]
